FAERS Safety Report 4571409-0 (Version None)
Quarter: 2005Q1

REPORT INFORMATION
  Report Type: 
  Country: None (occurrence: None)
  Receive Date: 20050205
  Receipt Date: 20050201
  Transmission Date: 20050727
  Serious: Yes (Death, Other)
  Sender: FDA-Public Use
  Company Number: PHEH2005US01534

PATIENT
  Age: 78 Year
  Sex: Male
  Weight: 150 kg

DRUGS (2)
  1. NEORAL [Suspect]
     Indication: RENAL TRANSPLANT
     Dosage: 75 MG, BID
     Route: 048
     Dates: start: 19950201
  2. RADIOTHERAPY [Concomitant]

REACTIONS (2)
  - DEATH [None]
  - SQUAMOUS CELL CARCINOMA [None]
